FAERS Safety Report 12908233 (Version 2)
Quarter: 2016Q4

REPORT INFORMATION
  Report Type: Spontaneous
  Country: RU (occurrence: RU)
  Receive Date: 20161103
  Receipt Date: 20161115
  Transmission Date: 20170207
  Serious: Yes (Other)
  Sender: FDA-Public Use
  Company Number: RU-PFIZER INC-2016506637

PATIENT
  Age: 30 Year
  Sex: Female

DRUGS (2)
  1. DOSTINEX [Suspect]
     Active Substance: CABERGOLINE
     Indication: HYPERPROLACTINAEMIA
     Dosage: 1/2 TABLET, 2X/WEEK
     Route: 048
     Dates: start: 20161001, end: 20161018
  2. DEXAMETHASONE. [Concomitant]
     Active Substance: DEXAMETHASONE
     Dosage: 1 TAB, DAILY
     Dates: start: 20161001

REACTIONS (11)
  - Back pain [Recovering/Resolving]
  - Movement disorder [Recovering/Resolving]
  - Ear congestion [Recovered/Resolved]
  - Heart rate increased [Recovered/Resolved]
  - Condition aggravated [Recovered/Resolved]
  - Brain oedema [Not Recovered/Not Resolved]
  - Oedema peripheral [Recovering/Resolving]
  - Blood pressure fluctuation [Recovered/Resolved]
  - Memory impairment [Recovered/Resolved]
  - Disturbance in attention [Recovered/Resolved]
  - Cognitive disorder [Recovered/Resolved]

NARRATIVE: CASE EVENT DATE: 20161005
